FAERS Safety Report 5588349-0 (Version None)
Quarter: 2008Q1

REPORT INFORMATION
  Report Type: 
  Country: None (occurrence: None)
  Receive Date: 20080111
  Receipt Date: 20070928
  Transmission Date: 20080703
  Serious: No
  Sender: FDA-Public Use
  Company Number: A0685028A

PATIENT
  Age: 67 Year
  Sex: Female

DRUGS (3)
  1. TYKERB [Suspect]
     Indication: BREAST CANCER
     Dosage: 1250MG PER DAY
     Route: 048
     Dates: start: 20070727
  2. ADVAIR DISKUS 100/50 [Suspect]
     Indication: ILL-DEFINED DISORDER
     Dosage: 1PUFF TWICE PER DAY
     Route: 055
     Dates: start: 20070914
  3. PAXIL [Suspect]
     Indication: DRUG USE FOR UNKNOWN INDICATION
     Route: 048

REACTIONS (7)
  - COUGH [None]
  - DEPRESSION [None]
  - DRUG INEFFECTIVE [None]
  - HOT FLUSH [None]
  - RASH [None]
  - SECRETION DISCHARGE [None]
  - SOMNOLENCE [None]
